FAERS Safety Report 21921030 (Version 1)
Quarter: 2023Q1

REPORT INFORMATION
  Report Type: Spontaneous
  Country: US (occurrence: None)
  Receive Date: 20230127
  Receipt Date: 20230127
  Transmission Date: 20230418
  Serious: Yes (Hospitalization)
  Sender: FDA-Public Use
  Company Number: None

PATIENT
  Age: 28 Year
  Sex: Male
  Weight: 119.3 kg

DRUGS (1)
  1. BELATACEPT [Suspect]
     Active Substance: BELATACEPT
     Indication: Renal transplant
     Dosage: OTHER FREQUENCY : EVERY 28 DAYS;?
     Route: 042
     Dates: start: 20221209

REACTIONS (5)
  - Subcapsular renal haematoma [None]
  - Renal mass [None]
  - Abdominal pain [None]
  - Blood creatine abnormal [None]
  - Urine output decreased [None]

NARRATIVE: CASE EVENT DATE: 20230125
